FAERS Safety Report 6508191-3 (Version None)
Quarter: 2009Q4

REPORT INFORMATION
  Report Type: 
  Country: None (occurrence: None)
  Receive Date: 20091221
  Receipt Date: 20081215
  Transmission Date: 20100525
  Serious: No
  Sender: FDA-Public Use
  Company Number: US-ASTRAZENECA-2008UW27997

PATIENT
  Age: 49 Year
  Sex: Male
  Weight: 81.6 kg

DRUGS (6)
  1. CRESTOR [Suspect]
     Indication: HYPERCHOLESTEROLAEMIA
     Route: 048
     Dates: start: 20080901
  2. DEPAKOTE [Concomitant]
  3. LEXAPRO [Concomitant]
  4. ASPIRIN [Concomitant]
     Dosage: 81 MG
  5. XANAX [Concomitant]
  6. MULTI-VITAMIN [Concomitant]

REACTIONS (1)
  - INSOMNIA [None]
